FAERS Safety Report 6668654-7 (Version None)
Quarter: 2010Q2

REPORT INFORMATION
  Report Type: 
  Country: None (occurrence: None)
  Receive Date: 20100401
  Receipt Date: 20100319
  Transmission Date: 20101027
  Serious: Yes (Hospitalization)
  Sender: FDA-Public Use
  Company Number: 2010AL001815

PATIENT
  Age: 40 Year
  Sex: Male

DRUGS (5)
  1. HYDROCORTISONE [Suspect]
  2. CHLORPHENIRAMINE MALEATE [Concomitant]
  3. REMICADE [Concomitant]
  4. PREDNISOLONE [Concomitant]
  5. MESALAZINE [Concomitant]

REACTIONS (4)
  - BLOOD PRESSURE INCREASED [None]
  - DIZZINESS [None]
  - NAUSEA [None]
  - OXYGEN SATURATION DECREASED [None]
